FAERS Safety Report 10377603 (Version 1)
Quarter: 2014Q3

REPORT INFORMATION
  Report Type: Report from Study
  Country: BR (occurrence: BR)
  Receive Date: 20140812
  Receipt Date: 20140812
  Transmission Date: 20150326
  Serious: Yes (Other)
  Sender: FDA-Public Use
  Company Number: PHHY2014BR097778

PATIENT
  Age: 85 Year
  Sex: Male

DRUGS (8)
  1. FORMOTEROL [Suspect]
     Active Substance: FORMOTEROL
     Dosage: UNK UKN, UNK
  2. TIOTROPIUM [Concomitant]
     Active Substance: TIOTROPIUM
     Dosage: UNK UKN, UNK
  3. FUROSEMIDE. [Concomitant]
     Active Substance: FUROSEMIDE
     Dosage: UNK UKN, UNK
  4. BISOPROLOL [Concomitant]
     Active Substance: BISOPROLOL
     Dosage: UNK UKN, UNK
  5. ATORVASTATIN [Concomitant]
     Active Substance: ATORVASTATIN
     Dosage: UNK UKN, UNK
  6. SALBUTAMOL [Concomitant]
     Active Substance: ALBUTEROL
     Dosage: UNK UKN, PRN (AS DEMAND)
  7. ASPIRIN. [Concomitant]
     Active Substance: ASPIRIN
     Dosage: UNK UKN, UNK
  8. BUDESONIDE. [Suspect]
     Active Substance: BUDESONIDE
     Dosage: UNK UKN, UNK

REACTIONS (9)
  - Productive cough [Unknown]
  - Concomitant disease aggravated [Unknown]
  - Oedema peripheral [Unknown]
  - Hypertension [Unknown]
  - Dyspnoea [Recovering/Resolving]
  - Breath sounds abnormal [Unknown]
  - Chronic obstructive pulmonary disease [Unknown]
  - Cardiac failure congestive [Unknown]
  - Wheezing [Unknown]
